FAERS Safety Report 6255295-9 (Version None)
Quarter: 2009Q3

REPORT INFORMATION
  Report Type: 
  Country: None (occurrence: None)
  Receive Date: 20090702
  Receipt Date: 20090624
  Transmission Date: 20100115
  Serious: Yes (Hospitalization)
  Sender: FDA-Public Use
  Company Number: GB-JNJFOC-20090608762

PATIENT
  Age: 70 Year
  Sex: Female

DRUGS (15)
  1. CAELYX [Suspect]
     Indication: LYMPHOMA
     Route: 042
  2. CYCLOPHOSPHAMIDE [Suspect]
     Indication: LYMPHOMA
     Route: 042
  3. MABTHERA [Suspect]
     Indication: LYMPHOMA
     Route: 042
  4. PREDNISONE [Suspect]
     Indication: LYMPHOMA
     Route: 065
  5. VINCRISTINE [Suspect]
     Indication: LYMPHOMA
     Route: 065
  6. ALLOPURINOL [Concomitant]
     Route: 065
  7. ATORVASTATIN CALCIUM [Concomitant]
     Route: 065
  8. CANDESARTAN CILEXETIL [Concomitant]
     Route: 065
  9. CLARITHROMYCIN [Concomitant]
     Route: 065
  10. DILTIAZEM [Concomitant]
     Route: 065
  11. FLUCONAZOLE [Concomitant]
     Route: 065
  12. ISOSORBIDE [Concomitant]
     Route: 065
  13. NULYTELY [Concomitant]
     Route: 065
  14. OMEPRAZOLE [Concomitant]
     Route: 065
  15. PREDNISOLONE [Concomitant]
     Route: 065

REACTIONS (1)
  - CENTRAL NERVOUS SYSTEM LYMPHOMA [None]
